FAERS Safety Report 16090668 (Version 2)
Quarter: 2019Q1

REPORT INFORMATION
  Report Type: Spontaneous
  Country: US (occurrence: US)
  Receive Date: 20190319
  Receipt Date: 20190326
  Transmission Date: 20190418
  Serious: No
  Sender: FDA-Public Use
  Company Number: US-009507513-1902USA010699

PATIENT
  Sex: Male

DRUGS (2)
  1. INTRON A [Suspect]
     Active Substance: INTERFERON ALFA-2B
     Dosage: 1.25 MILLION INTERNATIONAL UNIT
  2. INTRON A [Suspect]
     Active Substance: INTERFERON ALFA-2B
     Dosage: 2.5 MILLION INTERNATIONAL UNIT

REACTIONS (2)
  - Adverse event [Unknown]
  - Product prescribing error [Unknown]
